FAERS Safety Report 9690275 (Version 1)
Quarter: 2013Q4

REPORT INFORMATION
  Report Type: Spontaneous
  Country: US (occurrence: None)
  Receive Date: 20131114
  Receipt Date: 20131114
  Transmission Date: 20140711
  Serious: No
  Sender: FDA-Public Use
  Company Number: None

PATIENT
  Age: 73 Year
  Sex: Female
  Weight: 101 kg

DRUGS (4)
  1. CYCLOPHOSPHAMIDE [Suspect]
  2. DOCETAXEL (TAXOTERE) [Suspect]
  3. ATENOLOL [Concomitant]
  4. LISINOPRIL/HYDROCHLOROTHIAZIDE [Concomitant]

REACTIONS (2)
  - Treatment noncompliance [None]
  - Blood potassium decreased [None]
